FAERS Safety Report 22291722 (Version 1)
Quarter: 2023Q2

REPORT INFORMATION
  Report Type: Spontaneous
  Country: US (occurrence: None)
  Receive Date: 20230505
  Receipt Date: 20230505
  Transmission Date: 20230722
  Serious: Yes (Other)
  Sender: FDA-Public Use
  Company Number: None

PATIENT
  Age: 1 Year
  Sex: Female
  Weight: 11.25 kg

DRUGS (6)
  1. TRIAMCINOLONE ACETONIDE [Suspect]
     Active Substance: TRIAMCINOLONE ACETONIDE
     Indication: Eczema
     Dosage: OTHER QUANTITY : 60 APPLICATIONS;?FREQUENCY : TWICE A DAY;?
     Route: 061
     Dates: start: 20221122, end: 20230224
  2. CHILDRENS BENADRYL ALLERGY [Concomitant]
     Active Substance: DIPHENHYDRAMINE HYDROCHLORIDE
  3. CHILDRENS MOTRIN [Concomitant]
     Active Substance: IBUPROFEN
  4. CHILDREN^S DHA [Concomitant]
  5. Children^s Probiotic [Concomitant]
  6. CHILDREN^S MULTIVITAMIN [Concomitant]

REACTIONS (17)
  - Steroid withdrawal syndrome [None]
  - Eczema [None]
  - Skin hypopigmentation [None]
  - Erythema [None]
  - Skin burning sensation [None]
  - Pain of skin [None]
  - Rash [None]
  - Pruritus [None]
  - Scratch [None]
  - Alopecia [None]
  - Alopecia [None]
  - Thirst [None]
  - Skin warm [None]
  - Night sweats [None]
  - Sleep disorder [None]
  - Discomfort [None]
  - Agitation [None]

NARRATIVE: CASE EVENT DATE: 20230101
